FAERS Safety Report 12946817 (Version 1)
Quarter: 2016Q4

REPORT INFORMATION
  Report Type: Other
  Country: CN (occurrence: CN)
  Receive Date: 20161116
  Receipt Date: 20161116
  Transmission Date: 20170207
  Serious: Yes (Disabling, Other)
  Sender: FDA-Public Use
  Company Number: CN-TAKEDA-2016MPI009696

PATIENT
  Age: 59 Year
  Sex: Male
  Weight: 60 kg

DRUGS (3)
  1. FLUDARABINE PHOSPHATE. [Suspect]
     Active Substance: FLUDARABINE PHOSPHATE
     Indication: MANTLE CELL LYMPHOMA RECURRENT
     Route: 041
     Dates: start: 20140902, end: 20141212
  2. VELCADE [Suspect]
     Active Substance: BORTEZOMIB
     Indication: MANTLE CELL LYMPHOMA RECURRENT
     Dosage: 2.1 MG, UNK
     Route: 040
     Dates: start: 20140902, end: 20141212
  3. CYCLOPHOSPHAMIDE. [Suspect]
     Active Substance: CYCLOPHOSPHAMIDE
     Indication: MANTLE CELL LYMPHOMA RECURRENT
     Route: 041
     Dates: start: 20140902, end: 20141212

REACTIONS (2)
  - Febrile infection [Unknown]
  - Bone marrow failure [Recovered/Resolved]

NARRATIVE: CASE EVENT DATE: 20141212
